FAERS Safety Report 8095613-2 (Version None)
Quarter: 2012Q1

REPORT INFORMATION
  Report Type: 
  Country: None (occurrence: None)
  Receive Date: 20120129
  Receipt Date: 20111228
  Transmission Date: 20120608
  Serious: No
  Sender: FDA-Public Use
  Company Number: US-ABBOTT-11P-163-0887321-00

PATIENT
  Age: 57 Year
  Sex: Female

DRUGS (8)
  1. MS CONTIN [Concomitant]
     Indication: PRODUCT USED FOR UNKNOWN INDICATION
  2. HUMIRA [Suspect]
     Indication: PSORIASIS
     Dosage: LOADING DOSE
     Dates: start: 20111222
  3. ELAVIL [Concomitant]
     Indication: PRODUCT USED FOR UNKNOWN INDICATION
  4. SYNTHROID [Concomitant]
     Indication: THYROID DISORDER
  5. METFORMIN HCL [Concomitant]
     Indication: DIABETES MELLITUS
  6. NEURONTIN [Concomitant]
     Indication: PRODUCT USED FOR UNKNOWN INDICATION
  7. VICODIN [Concomitant]
     Indication: FIBROMYALGIA
  8. FLEXERIL [Concomitant]
     Indication: PRODUCT USED FOR UNKNOWN INDICATION

REACTIONS (2)
  - INJECTION SITE HAEMATOMA [None]
  - MUSCLE STRAIN [None]
